FAERS Safety Report 4372246-2 (Version None)
Quarter: 2004Q2

REPORT INFORMATION
  Report Type: 
  Country: None (occurrence: None)
  Receive Date: 20040603
  Receipt Date: 20040603
  Transmission Date: 20050107
  Serious: Yes (Other)
  Sender: FDA-Public Use
  Company Number: None

PATIENT
  Age: 35 Year
  Sex: Female
  Weight: 52.1637 kg

DRUGS (1)
  1. TRINESSA [Suspect]
     Indication: CONTRACEPTION
     Dosage: 1 PILL ORAL
     Route: 048
     Dates: start: 20040201, end: 20040301

REACTIONS (5)
  - BLISTER [None]
  - BREAST PAIN [None]
  - PAIN IN EXTREMITY [None]
  - PHARMACEUTICAL PRODUCT COMPLAINT [None]
  - RASH [None]
